FAERS Safety Report 12329962 (Version 1)
Quarter: 2016Q2

REPORT INFORMATION
  Report Type: Spontaneous
  Country: GB (occurrence: GB)
  Receive Date: 20160504
  Receipt Date: 20160504
  Transmission Date: 20160815
  Serious: Yes (Other)
  Sender: FDA-Public Use
  Company Number: GB-CIPLA LTD.-2016GB04360

PATIENT

DRUGS (9)
  1. CYCLOPHOSPHAMIDE. [Suspect]
     Active Substance: CYCLOPHOSPHAMIDE
     Indication: RHABDOID TUMOUR
     Dosage: UNK, OVER 1 H, PER DAY, AT WEEKS 1, 10, 13, 22, AND 28
     Route: 042
  2. CYCLOPHOSPHAMIDE. [Suspect]
     Active Substance: CYCLOPHOSPHAMIDE
     Dosage: UNK, OVER 1 H, PER DAY, WEEKS 4, 7, 16, 19, AND 25
     Route: 042
  3. VINCRISTINE [Suspect]
     Active Substance: VINCRISTINE
     Indication: RHABDOID TUMOUR
     Dosage: UNK, OVER 1 MIN, PER DAY, AT WEEKS 1, 10, 13, 22, AND 28
     Route: 042
  4. VINCRISTINE [Suspect]
     Active Substance: VINCRISTINE
     Dosage: UNK, PER DAY, ALONE ON WEEKS 2, 3, 11, 12, 14, 15, 23, 24, 29 AND 30
     Route: 042
  5. MESNA. [Suspect]
     Active Substance: MESNA
     Indication: RHABDOID TUMOUR
     Dosage: UNK, OVER 1 H, PER DAY, WEEKS 1, 10, 13, 22 AND 28
     Route: 042
  6. ETOPOSIDE. [Suspect]
     Active Substance: ETOPOSIDE
     Indication: RHABDOID TUMOUR
     Dosage: UNK, OVER 1 H, PER DAY, AT WEEKS 4, 7, 16, 19, AND 25
     Route: 042
  7. DOXORUBICIN [Suspect]
     Active Substance: DOXORUBICIN
     Indication: RHABDOID TUMOUR
     Dosage: UNK, OVER 15 MIN, PER DAY, AT WEEKS 1, 10, 13, 22, AND 28
     Route: 042
  8. CARBOPLATIN. [Suspect]
     Active Substance: CARBOPLATIN
     Indication: RHABDOID TUMOUR
     Dosage: UNK, OVER 1 H, PER DAY, AT WEEKS 4, 7, 16, 19, AND 25
     Route: 042
  9. MESNA. [Suspect]
     Active Substance: MESNA
     Dosage: UNK, OVER 1 H, PER DAY, WEEKS 4, 7, 16, 19, AND 25
     Route: 042

REACTIONS (1)
  - Gastroenteritis radiation [Unknown]
